FAERS Safety Report 16116517 (Version 4)
Quarter: 2020Q2

REPORT INFORMATION
  Report Type: Spontaneous
  Country: PT (occurrence: PT)
  Receive Date: 20190326
  Receipt Date: 20200613
  Transmission Date: 20200713
  Serious: Yes (Hospitalization, Other)
  Sender: FDA-Public Use
  Company Number: PT-AUROBINDO-AUR-APL-2019-014921

PATIENT
  Age: 35 Year
  Sex: Male

DRUGS (26)
  1. LORAZEPAM. [Suspect]
     Active Substance: LORAZEPAM
     Indication: AGGRESSION
  2. CYAMEMAZINE [Suspect]
     Active Substance: CYAMEMAZINE
     Indication: SOLILOQUY
  3. FLURAZEPAM [Suspect]
     Active Substance: FLURAZEPAM HYDROCHLORIDE
     Indication: HALLUCINATION, AUDITORY
  4. FLURAZEPAM [Suspect]
     Active Substance: FLURAZEPAM HYDROCHLORIDE
     Indication: HALLUCINATION, AUDITORY
  5. FLURAZEPAM [Suspect]
     Active Substance: FLURAZEPAM HYDROCHLORIDE
     Indication: ANXIETY
  6. LORAZEPAM. [Suspect]
     Active Substance: LORAZEPAM
     Indication: ANXIETY
     Dosage: 15 MILLIGRAM, DAILY, AT BED TIME
     Route: 065
  7. LORAZEPAM. [Suspect]
     Active Substance: LORAZEPAM
     Indication: HALLUCINATION, AUDITORY
  8. OLANZAPINE. [Suspect]
     Active Substance: OLANZAPINE
     Indication: SOLILOQUY
  9. CYAMEMAZINE [Suspect]
     Active Substance: CYAMEMAZINE
     Indication: INSOMNIA
  10. FLURAZEPAM [Suspect]
     Active Substance: FLURAZEPAM HYDROCHLORIDE
     Indication: SOLILOQUY
  11. LORAZEPAM. [Suspect]
     Active Substance: LORAZEPAM
     Indication: INSOMNIA
     Dosage: UNK, ON DAYS 1-10 WITH MAXIMUM DOSE OF 5 MG/DAY
     Route: 065
  12. CYAMEMAZINE [Suspect]
     Active Substance: CYAMEMAZINE
     Indication: HALLUCINATION, AUDITORY
  13. CYAMEMAZINE [Suspect]
     Active Substance: CYAMEMAZINE
     Indication: HALLUCINATION, AUDITORY
  14. OLANZAPINE. [Suspect]
     Active Substance: OLANZAPINE
     Indication: HALLUCINATION, AUDITORY
  15. OLANZAPINE. [Suspect]
     Active Substance: OLANZAPINE
     Indication: AGGRESSION
  16. OLANZAPINE. [Suspect]
     Active Substance: OLANZAPINE
     Indication: PERSECUTORY DELUSION
  17. CYAMEMAZINE [Suspect]
     Active Substance: CYAMEMAZINE
     Indication: ANXIETY
     Dosage: 100 MILLIGRAM, ONCE A DAY, ON 7-18 DAYS
     Route: 065
  18. FLURAZEPAM [Suspect]
     Active Substance: FLURAZEPAM HYDROCHLORIDE
     Indication: INSOMNIA
  19. LORAZEPAM. [Suspect]
     Active Substance: LORAZEPAM
     Indication: HALLUCINATION, AUDITORY
     Dosage: 5 MILLIGRAM, ONCE A DAY
     Route: 065
  20. LORAZEPAM. [Suspect]
     Active Substance: LORAZEPAM
     Indication: SOLILOQUY
  21. OLANZAPINE. [Suspect]
     Active Substance: OLANZAPINE
     Indication: HALLUCINATION, AUDITORY
     Dosage: 20 MILLIGRAM, ONCE A DAY  ON 1-4 DAYS
     Route: 065
  22. OLANZAPINE. [Suspect]
     Active Substance: OLANZAPINE
     Indication: ANXIETY
     Dosage: 25 MILLIGRAM, ONCE A DAY DAYS ON 5-18
     Route: 065
  23. OLANZAPINE. [Suspect]
     Active Substance: OLANZAPINE
     Indication: INSOMNIA
     Dosage: 5 MILLIGRAM, (AS-NEEDED)
     Route: 065
  24. OLANZAPINE. [Suspect]
     Active Substance: OLANZAPINE
     Indication: PSYCHOTIC DISORDER
  25. CYAMEMAZINE [Suspect]
     Active Substance: CYAMEMAZINE
     Indication: AGGRESSION
  26. FLURAZEPAM [Suspect]
     Active Substance: FLURAZEPAM HYDROCHLORIDE
     Indication: AGGRESSION
     Dosage: 15 MILLIGRAM, ONCE A DAY AT BEDTIME
     Route: 065

REACTIONS (3)
  - Pyrexia [Recovered/Resolved]
  - Neutrophilia [Unknown]
  - Drug ineffective [Unknown]
